FAERS Safety Report 13143504 (Version 1)
Quarter: 2017Q1

REPORT INFORMATION
  Report Type: Spontaneous
  Country: US (occurrence: US)
  Receive Date: 20170124
  Receipt Date: 20170124
  Transmission Date: 20170428
  Serious: Yes (Other)
  Sender: FDA-Public Use
  Company Number: None

PATIENT
  Age: 53 Year
  Sex: Male
  Weight: 99.88 kg

DRUGS (7)
  1. SIMVASTATIN. [Concomitant]
     Active Substance: SIMVASTATIN
  2. BACLOFEN. [Concomitant]
     Active Substance: BACLOFEN
  3. TAMSULOSIN [Concomitant]
     Active Substance: TAMSULOSIN
  4. FAMOTIDINE. [Concomitant]
     Active Substance: FAMOTIDINE
  5. SULFAMETH/TMP MFG VISTA-GENERIC FOR BACTRIM DS [Suspect]
     Active Substance: SULFAMETHOXAZOLE\TRIMETHOPRIM
     Indication: SINUSITIS
     Dosage: ?          QUANTITY:1 ?NOT; 9+ 1M0??AT EMF;?
     Route: 048
     Dates: start: 20161216, end: 20161218
  6. CITALOPRAM [Concomitant]
     Active Substance: CITALOPRAM HYDROBROMIDE
  7. BUPROPION SR [Concomitant]
     Active Substance: BUPROPION HYDROCHLORIDE

REACTIONS (7)
  - Muscle spasms [None]
  - Decreased appetite [None]
  - Dyspnoea [None]
  - Chest discomfort [None]
  - Burning sensation [None]
  - Dizziness [None]
  - Abdominal pain upper [None]

NARRATIVE: CASE EVENT DATE: 20161216
